FAERS Safety Report 5831185-8 (Version None)
Quarter: 2008Q3

REPORT INFORMATION
  Report Type: 
  Country: None (occurrence: None)
  Receive Date: 20080801
  Receipt Date: 20080520
  Transmission Date: 20090109
  Serious: No
  Sender: FDA-Public Use
  Company Number: US-BRISTOL-MYERS SQUIBB COMPANY-14197529

PATIENT
  Age: 55 Year
  Sex: Male
  Weight: 77 kg

DRUGS (8)
  1. COUMADIN [Suspect]
     Route: 048
  2. OXYCODONE HCL + ACETAMINOPHEN [Interacting]
     Indication: BACK PAIN
     Dosage: 1DOSAGE FORM=1 TAB.
     Route: 048
     Dates: start: 20050101
  3. LIPITOR [Concomitant]
  4. LEVOTHYROXINE SODIUM [Concomitant]
  5. METOPROLOL [Concomitant]
  6. VITAMIN [Concomitant]
  7. LISINOPRIL [Concomitant]
  8. MULTI-VITAMINS [Concomitant]

REACTIONS (2)
  - DRUG INTERACTION [None]
  - DRUG SCREEN NEGATIVE [None]
